FAERS Safety Report 26108897 (Version 1)
Quarter: 2025Q4

REPORT INFORMATION
  Report Type: Spontaneous
  Country: US (occurrence: None)
  Receive Date: 20251128
  Receipt Date: 20251128
  Transmission Date: 20260117
  Serious: Yes (Other)
  Sender: FDA-CTU
  Company Number: None

PATIENT
  Age: 61 Year
  Sex: Female
  Weight: 66.7 kg

DRUGS (1)
  1. ZIIHERA [Suspect]
     Active Substance: ZANIDATAMAB-HRII
     Dosage: 1360 MG/MG EVERY 2 WEEKS INTRAVENOUS DRIP
     Route: 041
     Dates: start: 20251128

REACTIONS (1)
  - Chills [None]

NARRATIVE: CASE EVENT DATE: 20251128
